FAERS Safety Report 14730895 (Version 1)
Quarter: 2018Q2

REPORT INFORMATION
  Report Type: Spontaneous
  Country: US (occurrence: US)
  Receive Date: 20180406
  Receipt Date: 20180406
  Transmission Date: 20180711
  Serious: Yes (Hospitalization, Other)
  Sender: FDA-Public Use
  Company Number: US-BRISTOL-MYERS SQUIBB COMPANY-BMS-2018-029202

PATIENT
  Age: 74 Year
  Sex: Male

DRUGS (2)
  1. COUMADIN [Suspect]
     Active Substance: WARFARIN SODIUM
     Indication: PRODUCT USED FOR UNKNOWN INDICATION
     Dosage: 240 FLAT DOSE
     Route: 065
  2. OPDIVO [Suspect]
     Active Substance: NIVOLUMAB
     Indication: MALIGNANT MELANOMA
     Dosage: 1 DF, Q2WK
     Route: 065

REACTIONS (10)
  - Osteoarthritis [Unknown]
  - Dysarthria [Unknown]
  - Insomnia [Unknown]
  - Asthenia [Unknown]
  - Pancreatitis [Unknown]
  - Arthralgia [Unknown]
  - Fall [Unknown]
  - Loss of consciousness [Unknown]
  - Pollakiuria [Unknown]
  - Type 1 diabetes mellitus [Unknown]

NARRATIVE: CASE EVENT DATE: 20180312
